FAERS Safety Report 7002620-7 (Version None)
Quarter: 2010Q3

REPORT INFORMATION
  Report Type: 
  Country: None (occurrence: None)
  Receive Date: 20100920
  Receipt Date: 20100909
  Transmission Date: 20110219
  Serious: Yes (Hospitalization)
  Sender: FDA-Public Use
  Company Number: DE-JNJFOC-20100809033

PATIENT
  Sex: Male
  Weight: 32 kg

DRUGS (5)
  1. REMICADE [Suspect]
     Indication: CROHN'S DISEASE
     Route: 042
  2. REMICADE [Suspect]
     Route: 042
  3. 5-ASA [Concomitant]
     Dosage: ALSO RECEIVED RECTAL MESALAZINE
     Route: 048
  4. AMPHOTERICIN B [Concomitant]
  5. RIFAXIMIN [Concomitant]
     Indication: CROHN'S DISEASE

REACTIONS (1)
  - CROHN'S DISEASE [None]
